FAERS Safety Report 5235154-0 (Version None)
Quarter: 2007Q1

REPORT INFORMATION
  Report Type: 
  Country: None (occurrence: None)
  Receive Date: 20070207
  Receipt Date: 20070129
  Transmission Date: 20070707
  Serious: Yes (Other)
  Sender: FDA-Public Use
  Company Number: GXKR2007IN01251

PATIENT
  Age: 52 Year
  Sex: Male

DRUGS (3)
  1. CYCLOSPORINE [Suspect]
     Indication: IMMUNOSUPPRESSION
     Dosage: 175 MG QD ORAL
     Route: 048
  2. PREDNISOLONE [Suspect]
     Indication: IMMUNOSUPPRESSION
     Dosage: 10 MG QD ORAL
     Route: 048
  3. CYCLOPHOSPHAMIDE [Suspect]
     Indication: IMMUNOSUPPRESSION
     Dosage: 50 MG QD ORAL
     Route: 048

REACTIONS (4)
  - CARCINOMA IN SITU [None]
  - HUMAN PAPILLOMA VIRUS TEST POSITIVE [None]
  - OCULAR NEOPLASM [None]
  - SKIN PAPILLOMA [None]
